FAERS Safety Report 7606459-0 (Version None)
Quarter: 2011Q3

REPORT INFORMATION
  Report Type: 
  Country: None (occurrence: None)
  Receive Date: 20110713
  Receipt Date: 20110704
  Transmission Date: 20111222
  Serious: Yes (Hospitalization)
  Sender: FDA-Public Use
  Company Number: GB-TEVA-289801ISR

PATIENT
  Age: 49 Year
  Sex: Female

DRUGS (4)
  1. CLOZAPINE [Suspect]
     Indication: SCHIZOPHRENIA
     Route: 048
     Dates: start: 19990720
  2. AMLODIPINE [Suspect]
  3. ATENOLOL [Suspect]
  4. AMISULPRIDE [Suspect]

REACTIONS (5)
  - OVERDOSE [None]
  - SEDATION [None]
  - BLOOD PROLACTIN INCREASED [None]
  - VOMITING [None]
  - NAUSEA [None]
